FAERS Safety Report 18403008 (Version 1)
Quarter: 2020Q4

REPORT INFORMATION
  Report Type: Spontaneous
  Country: US (occurrence: US)
  Receive Date: 20201019
  Receipt Date: 20201019
  Transmission Date: 20210114
  Serious: Yes (Disabling)
  Sender: FDA-Public Use
  Company Number: US-WALGREENS PREMIER BRANDS OF AMERICA INC.-2092930

PATIENT
  Age: 55 Year
  Sex: Female
  Weight: 65 kg

DRUGS (1)
  1. LIQUID CORN AND CALLUS REMOVER [Suspect]
     Active Substance: SALICYLIC ACID
     Indication: SKIN LESION REMOVAL
     Route: 003
     Dates: start: 20200905, end: 20200910

REACTIONS (1)
  - Skin exfoliation [Recovering/Resolving]

NARRATIVE: CASE EVENT DATE: 20200910
